FAERS Safety Report 9331446 (Version 8)
Quarter: 2013Q4

REPORT INFORMATION
  Report Type: Report from Study
  Country: PT (occurrence: PT)
  Receive Date: 20130605
  Receipt Date: 20131217
  Transmission Date: 20140711
  Serious: Yes (Life-Threatening, Hospitalization, Other)
  Sender: FDA-Public Use
  Company Number: PT-ROCHE-1229731

PATIENT
  Age: 39 Year
  Sex: Male
  Weight: 61 kg

DRUGS (9)
  1. RIBAVIRIN [Suspect]
     Indication: HEPATITIS C
     Dosage: 1000 MG (400MG+0+600 MG),
     Route: 048
     Dates: start: 20130301, end: 20130519
  2. RIBAVIRIN [Suspect]
     Route: 048
     Dates: start: 20130520, end: 20130522
  3. RIBAVIRIN [Suspect]
     Route: 048
     Dates: start: 20130524, end: 20130912
  4. PEG-INTERFERON ALFA 2A [Suspect]
     Indication: HEPATITIS C
     Dosage: RECEIVED SAME DOSE ON 08/MAR/2013, 16/MAR/2013, 23/MAR/2013, 30/MAR/2013, 06/APR/2013, 13/APR/2013,
     Route: 058
     Dates: start: 20130301
  5. MK-3034 [Suspect]
     Indication: HEPATITIS C
     Dosage: 2400 MG (800MG+800MG+800MG)
     Route: 048
     Dates: start: 20130328, end: 20130522
  6. MK-3034 [Suspect]
     Route: 048
     Dates: start: 20130525, end: 20130623
  7. MK-3034 [Suspect]
     Route: 048
     Dates: start: 20130625, end: 20130912
  8. SERTRALINE [Concomitant]
  9. METHADONE HYDROCHLORIDE [Concomitant]
     Route: 065

REACTIONS (2)
  - Suicide attempt [Recovered/Resolved]
  - Adjustment disorder [Recovering/Resolving]
